FAERS Safety Report 13564829 (Version 1)
Quarter: 2017Q2

REPORT INFORMATION
  Report Type: Report from Study
  Country: US (occurrence: US)
  Receive Date: 20170519
  Receipt Date: 20170519
  Transmission Date: 20170830
  Serious: Yes (Hospitalization, Other)
  Sender: FDA-Public Use
  Company Number: US-JAZZ-2017-US-005267

PATIENT
  Sex: Female

DRUGS (50)
  1. MELOXICAM. [Concomitant]
     Active Substance: MELOXICAM
  2. ADDERALL [Concomitant]
     Active Substance: AMPHETAMINE ASPARTATE\AMPHETAMINE SULFATE\DEXTROAMPHETAMINE SACCHARATE\DEXTROAMPHETAMINE SULFATE
  3. OXYCODONE HYDROCHLORIDE. [Concomitant]
     Active Substance: OXYCODONE HYDROCHLORIDE
  4. ZANAFLEX [Concomitant]
     Active Substance: TIZANIDINE HYDROCHLORIDE
  5. BACTRIM DS [Concomitant]
     Active Substance: SULFAMETHOXAZOLE\TRIMETHOPRIM
  6. PREDNISONE. [Concomitant]
     Active Substance: PREDNISONE
  7. ACYCLOVIR                          /00587301/ [Concomitant]
     Active Substance: ACYCLOVIR
  8. LORAZEPAM. [Concomitant]
     Active Substance: LORAZEPAM
  9. PRISTIQ EXTENDED-RELEASE [Concomitant]
     Active Substance: DESVENLAFAXINE SUCCINATE
  10. ZOFRAN [Concomitant]
     Active Substance: ONDANSETRON HYDROCHLORIDE
  11. XOPENEX HFA [Concomitant]
     Active Substance: LEVALBUTEROL TARTRATE
  12. HYDROXYCHLOROQUINE [Concomitant]
     Active Substance: HYDROXYCHLOROQUINE
  13. LEVOFLOXACIN. [Concomitant]
     Active Substance: LEVOFLOXACIN
  14. GABAPENTIN. [Concomitant]
     Active Substance: GABAPENTIN
  15. BUTRANS [Concomitant]
     Active Substance: BUPRENORPHINE
  16. VITAMIN D3 [Concomitant]
     Active Substance: CHOLECALCIFEROL
  17. XYREM [Suspect]
     Active Substance: SODIUM OXYBATE
     Dosage: 2.25 G, QD
     Route: 048
     Dates: start: 201612
  18. FUROSEMIDE. [Concomitant]
     Active Substance: FUROSEMIDE
  19. FENTANYL. [Concomitant]
     Active Substance: FENTANYL
  20. MAXALT [Concomitant]
     Active Substance: RIZATRIPTAN BENZOATE
  21. PULMOZYME [Concomitant]
     Active Substance: DORNASE ALFA
  22. XYREM [Suspect]
     Active Substance: SODIUM OXYBATE
     Indication: NARCOLEPSY
     Dosage: 2.25 G, BID
     Route: 048
     Dates: start: 201002, end: 2010
  23. XYREM [Suspect]
     Active Substance: SODIUM OXYBATE
     Dosage: 3 G, QD
     Route: 048
     Dates: start: 201612
  24. AZITHROMYCIN ANHYDROUS. [Concomitant]
     Active Substance: AZITHROMYCIN ANHYDROUS
  25. DILAUDID [Concomitant]
     Active Substance: HYDROMORPHONE HYDROCHLORIDE
  26. AMITRIPTYLINE HCL [Concomitant]
     Active Substance: AMITRIPTYLINE
  27. XYREM [Suspect]
     Active Substance: SODIUM OXYBATE
     Dosage: DOSE ADJUSTMENTS
     Route: 048
     Dates: start: 201408, end: 201612
  28. MIRAPEX [Concomitant]
     Active Substance: PRAMIPEXOLE DIHYDROCHLORIDE
  29. NAPROXEN. [Concomitant]
     Active Substance: NAPROXEN
  30. BACLOFEN. [Concomitant]
     Active Substance: BACLOFEN
  31. CYMBALTA [Concomitant]
     Active Substance: DULOXETINE HYDROCHLORIDE
  32. SENOKOT [Concomitant]
     Active Substance: SENNOSIDES
  33. ABILIFY [Concomitant]
     Active Substance: ARIPIPRAZOLE
  34. ADVAIR HFA [Concomitant]
     Active Substance: FLUTICASONE PROPIONATE\SALMETEROL XINAFOATE
  35. FLEXERIL                           /00821801/ [Concomitant]
     Active Substance: CEFIXIME
  36. TOBRAMYCIN. [Concomitant]
     Active Substance: TOBRAMYCIN
  37. WELLBUTRIN [Concomitant]
     Active Substance: BUPROPION HYDROCHLORIDE
  38. XYREM [Suspect]
     Active Substance: SODIUM OXYBATE
     Dosage: 2.25 G, BID
     Route: 048
     Dates: start: 201401, end: 201408
  39. PROMETHAZINE [Concomitant]
     Active Substance: PROMETHAZINE\PROMETHAZINE HYDROCHLORIDE
  40. AMITIZA [Concomitant]
     Active Substance: LUBIPROSTONE
  41. PROTONIX                           /00661201/ [Concomitant]
     Active Substance: OMEPRAZOLE
  42. CREON [Concomitant]
     Active Substance: PANCRELIPASE AMYLASE\PANCRELIPASE LIPASE\PANCRELIPASE PROTEASE
  43. MEDROXYPROGESTERONE [Concomitant]
     Active Substance: MEDROXYPROGESTERONE
  44. NUCYNTA [Concomitant]
     Active Substance: TAPENTADOL HYDROCHLORIDE
  45. METHOCARBAMOL. [Concomitant]
     Active Substance: METHOCARBAMOL
  46. MINOCYCLINE [Concomitant]
     Active Substance: MINOCYCLINE\MINOCYCLINE HYDROCHLORIDE
  47. COLACE [Concomitant]
     Active Substance: DOCUSATE SODIUM
  48. LUNESTA [Concomitant]
     Active Substance: ESZOPICLONE
  49. MIRALAX [Concomitant]
     Active Substance: POLYETHYLENE GLYCOL 3350
  50. PROPRANOLOL [Concomitant]
     Active Substance: PROPRANOLOL HYDROCHLORIDE

REACTIONS (2)
  - Hospitalisation [Unknown]
  - Osteoporosis [Unknown]

NARRATIVE: CASE EVENT DATE: 2016
